FAERS Safety Report 24769919 (Version 2)
Quarter: 2025Q1

REPORT INFORMATION
  Report Type: Spontaneous
  Country: US (occurrence: US)
  Receive Date: 20241224
  Receipt Date: 20250102
  Transmission Date: 20250408
  Serious: No
  Sender: TORRENT PHARMA INC.
  Company Number: US-TORRENT-00013905

PATIENT
  Sex: Male

DRUGS (1)
  1. ESCITALOPRAM [Suspect]
     Active Substance: ESCITALOPRAM OXALATE
     Indication: Anxiety
     Route: 065

REACTIONS (1)
  - Wrong technique in product usage process [Unknown]
